FAERS Safety Report 8759116 (Version 1)
Quarter: 2012Q4

REPORT INFORMATION
  Report Type: 
  Country: BR (occurrence: BR)
  Receive Date: 20120829
  Receipt Date: 20120829
  Transmission Date: 20130627
  Serious: Yes (Other)
  Sender: FDA-Public Use
  Company Number: PHHY2012BR074537

PATIENT
  Sex: Female
  Weight: 80 kg

DRUGS (6)
  1. CATAFLAM [Suspect]
     Indication: RHEUMATOID ARTHRITIS
     Dosage: 7.5 ml, BID
     Route: 048
     Dates: start: 201201
  2. CATAFLAM [Suspect]
     Dosage: UNK ml, UNK
     Route: 048
  3. METFORMIN [Concomitant]
     Indication: BLOOD GLUCOSE ABNORMAL
     Dosage: 1 DF, QD
     Route: 048
     Dates: start: 2010
  4. SIMVASTATIN [Concomitant]
     Indication: BLOOD CHOLESTEROL INCREASED
     Dosage: 1 DF, QW3
     Route: 048
     Dates: start: 2010
  5. SIMVASTATIN [Concomitant]
     Dosage: 1 DF, QW2
     Route: 048
  6. SIMVASTATIN [Concomitant]
     Dosage: 1 DF, QW
     Route: 048

REACTIONS (2)
  - Dengue fever [Recovered/Resolved]
  - Rheumatoid arthritis [Not Recovered/Not Resolved]
